FAERS Safety Report 24200263 (Version 1)
Quarter: 2024Q3

REPORT INFORMATION
  Report Type: Spontaneous
  Country: KR (occurrence: KR)
  Receive Date: 20240812
  Receipt Date: 20240812
  Transmission Date: 20241017
  Serious: Yes (Death)
  Sender: DAIICHI
  Company Number: KR-DAIICHI SANKYO, INC.-DSJ-2024-140012

PATIENT
  Age: 48 Year
  Sex: Female

DRUGS (1)
  1. TRASTUZUMAB DERUXTECAN [Suspect]
     Active Substance: TRASTUZUMAB DERUXTECAN
     Indication: Breast cancer
     Dosage: 300 MG
     Route: 042
     Dates: start: 20240716, end: 20240716

REACTIONS (1)
  - Death [Fatal]

NARRATIVE: CASE EVENT DATE: 20240723
